FAERS Safety Report 24225906 (Version 1)
Quarter: 2024Q3

REPORT INFORMATION
  Report Type: Spontaneous
  Country: PT (occurrence: None)
  Receive Date: 20240820
  Receipt Date: 20240820
  Transmission Date: 20241017
  Serious: Yes (Hospitalization)
  Sender: NORMON
  Company Number: None

PATIENT
  Age: 55 Year
  Sex: Female
  Weight: 67 kg

DRUGS (2)
  1. VANCOMYCIN [Suspect]
     Active Substance: VANCOMYCIN
     Indication: Peritonitis
     Dosage: 1800 MG INTRAPERITONEAL (MESMA FORMULA??O QUE INJECT?VEL)
     Dates: start: 20230127, end: 20230127
  2. MEROPENEM [Concomitant]
     Active Substance: MEROPENEM
     Indication: Peritonitis

REACTIONS (2)
  - Feeling hot [Recovered/Resolved]
  - Rash pruritic [Recovered/Resolved]

NARRATIVE: CASE EVENT DATE: 20230127
